FAERS Safety Report 9693356 (Version 1)
Quarter: 2013Q4

REPORT INFORMATION
  Report Type: Report from Study
  Country: US (occurrence: US)
  Receive Date: 20131118
  Receipt Date: 20131118
  Transmission Date: 20140711
  Serious: Yes (Hospitalization)
  Sender: FDA-Public Use
  Company Number: US-ROCHE-1301248

PATIENT
  Age: 57 Year
  Sex: Female

DRUGS (2)
  1. XELODA [Suspect]
     Indication: COLORECTAL CANCER METASTATIC
     Dosage: EVERY AM
     Route: 048
     Dates: start: 20130711, end: 20130821
  2. XELODA [Suspect]
     Dosage: EVERY PM
     Route: 048
     Dates: start: 20130711, end: 20130821

REACTIONS (5)
  - Large intestine operation [Recovering/Resolving]
  - Proctalgia [Recovering/Resolving]
  - Vomiting [Recovered/Resolved]
  - Decreased appetite [Recovering/Resolving]
  - Incision site infection [Recovering/Resolving]
